FAERS Safety Report 4350603-8 (Version None)
Quarter: 2004Q2

REPORT INFORMATION
  Report Type: 
  Country: None (occurrence: None)
  Receive Date: 20040427
  Receipt Date: 20040415
  Transmission Date: 20050107
  Serious: Yes (Hospitalization)
  Sender: FDA-Public Use
  Company Number: 04P-013-0257730-00

PATIENT
  Age: 77 Year
  Sex: Male

DRUGS (5)
  1. VALPROATE SODIUM [Suspect]
     Indication: EPILEPSY
     Dosage: 1000 TO 1500MG DAILY, PER ORAL
     Route: 048
     Dates: start: 20040212, end: 20040216
  2. ACENOCOUMAROL [Concomitant]
  3. BISOPROLOL FUMARATE [Concomitant]
  4. BUDESONIDE [Concomitant]
  5. MESALAZINE [Concomitant]

REACTIONS (8)
  - BLOOD CORTISOL DECREASED [None]
  - BRADYPHRENIA [None]
  - FACE OEDEMA [None]
  - FATIGUE [None]
  - GENERAL PHYSICAL HEALTH DETERIORATION [None]
  - HYPONATRAEMIA [None]
  - OEDEMA PERIPHERAL [None]
  - SOMNOLENCE [None]
